FAERS Safety Report 4603609-5 (Version None)
Quarter: 2005Q1

REPORT INFORMATION
  Report Type: 
  Country: None (occurrence: None)
  Receive Date: 20050310
  Receipt Date: 20050224
  Transmission Date: 20050727
  Serious: Yes (Other)
  Sender: FDA-Public Use
  Company Number: US-BOEHRINGER INGELHEIM PHARMMACEUTICALS, INC.-2005-DE-00759GD

PATIENT
  Age: 4 Year
  Sex: Male

DRUGS (6)
  1. ATROVENT [Suspect]
     Indication: BRONCHOSPASM
  2. ALBUTEROL [Suspect]
     Indication: BRONCHOSPASM
  3. EPINEPHRINE [Suspect]
     Indication: BRONCHOSPASM
     Route: 058
  4. MAGNESIUM SULFATE [Suspect]
     Indication: BRONCHOSPASM
  5. HELIOX [Suspect]
     Indication: BRONCHOSPASM
  6. CORTICOSTEROIDS [Suspect]
     Indication: BRONCHOSPASM
     Route: 042

REACTIONS (5)
  - ATELECTASIS [None]
  - CONDITION AGGRAVATED [None]
  - INAPPROPRIATE ANTIDIURETIC HORMONE SECRETION [None]
  - PNEUMONIA BACTERIAL [None]
  - RESPIRATORY FAILURE [None]
